FAERS Safety Report 6893249-X (Version None)
Quarter: 2010Q3

REPORT INFORMATION
  Report Type: 
  Country: None (occurrence: None)
  Receive Date: 20100731
  Receipt Date: 20090721
  Transmission Date: 20110219
  Serious: No
  Sender: FDA-Public Use
  Company Number: US-PFIZER INC-2009192566

PATIENT
  Sex: Female
  Weight: 49.887 kg

DRUGS (6)
  1. GABAPENTIN [Suspect]
     Indication: NEURALGIA
     Dosage: 300 MG, 3X/DAY
  2. GABAPENTIN [Suspect]
     Indication: BACK PAIN
  3. GABAPENTIN [Suspect]
     Indication: HOT FLUSH
  4. CYCLOBENZAPRINE [Concomitant]
     Dosage: 10 MG, UNK
  5. LISINOPRIL [Concomitant]
     Dosage: 40 MG, UNK
  6. PROPOXYPHENE HCL [Concomitant]
     Dosage: 100 MG, 2X/DAY

REACTIONS (1)
  - DRUG INEFFECTIVE [None]
